FAERS Safety Report 8852257 (Version 1)
Quarter: 2012Q4

REPORT INFORMATION
  Report Type: 
  Country: US (occurrence: US)
  Receive Date: 20121022
  Receipt Date: 20121022
  Transmission Date: 20130627
  Serious: No
  Sender: FDA-Public Use
  Company Number: US-MYLANLABS-2012S1008379

PATIENT
  Age: 76 Year
  Sex: Male

DRUGS (4)
  1. ALLOPURINOL TABLETS, USP [Suspect]
     Indication: BLOOD URIC ACID INCREASED
     Route: 048
     Dates: start: 201204
  2. AMLODIPINE BESILATE [Suspect]
     Route: 048
     Dates: start: 201203
  3. LOSARTAN [Suspect]
     Indication: BLOOD PRESSURE INCREASED
     Route: 048
     Dates: start: 201203
  4. CARVEDILOL [Suspect]
     Indication: BLOOD PRESSURE INCREASED
     Route: 048
     Dates: start: 201204, end: 201205

REACTIONS (2)
  - Constipation [Recovered/Resolved]
  - Muscle spasms [Recovered/Resolved]
